FAERS Safety Report 9258690 (Version 1)
Quarter: 2013Q2

REPORT INFORMATION
  Report Type: Report from Study
  Country: US (occurrence: US)
  Receive Date: 20130426
  Receipt Date: 20130426
  Transmission Date: 20140414
  Serious: Yes (Other)
  Sender: FDA-Public Use
  Company Number: US-PFIZER INC-2013122539

PATIENT
  Age: 63 Year
  Sex: Male
  Weight: 107.3 kg

DRUGS (3)
  1. CELECOXIB [Suspect]
     Indication: OSTEOARTHRITIS
     Dosage: 100 MG, 2X/DAY
     Route: 048
     Dates: start: 20110521, end: 20111014
  2. CELECOXIB [Suspect]
     Indication: RHEUMATOID ARTHRITIS
  3. NEXIUM [Suspect]
     Indication: PROPHYLAXIS
     Dosage: 20 MG, 1X/DAY
     Route: 048
     Dates: start: 20110521

REACTIONS (1)
  - Basal cell carcinoma [Unknown]
